FAERS Safety Report 11746847 (Version 10)
Quarter: 2018Q2

REPORT INFORMATION
  Report Type: Spontaneous
  Country: US (occurrence: US)
  Receive Date: 20151117
  Receipt Date: 20180622
  Transmission Date: 20180711
  Serious: Yes (Hospitalization, Other)
  Sender: FDA-Public Use
  Company Number: US-PFIZER INC-2015377673

PATIENT
  Age: 72 Year
  Sex: Female
  Weight: 70 kg

DRUGS (70)
  1. JANUVIA [Concomitant]
     Active Substance: SITAGLIPTIN PHOSPHATE
     Dosage: UNK
  2. PROAIR HFA [Concomitant]
     Active Substance: ALBUTEROL SULFATE
     Indication: DYSPNOEA
  3. TRIAMCINOLONE ACETONIDE. [Concomitant]
     Active Substance: TRIAMCINOLONE ACETONIDE
     Dosage: UNK
  4. DIPHENHYDRAMINE HCL [Concomitant]
     Active Substance: DIPHENHYDRAMINE HYDROCHLORIDE
     Dosage: UNK
  5. ROXICODONE [Concomitant]
     Active Substance: OXYCODONE HYDROCHLORIDE
     Dosage: 5 MG, UNK
  6. TOPAMAX [Concomitant]
     Active Substance: TOPIRAMATE
     Dosage: 200 MG, UNK
     Dates: start: 20151021
  7. CALCIUM CARBONATE/VITAMIN D3 [Concomitant]
     Active Substance: CALCIUM CARBONATE\CHOLECALCIFEROL
     Dosage: 1 DF, DAILY
     Route: 048
  8. GLUCOSAMINE HCL [Concomitant]
     Active Substance: GLUCOSAMINE
     Dosage: UNK
     Route: 048
  9. OCUVITE [Concomitant]
     Active Substance: VITAMINS
     Dosage: 2 DF, DAILY
     Route: 048
  10. ACYCLOVIR. [Concomitant]
     Active Substance: ACYCLOVIR
     Dosage: UNK
  11. FUROSEMIDE. [Concomitant]
     Active Substance: FUROSEMIDE
     Dosage: UNK, AS NEEDED
  12. OXYCODONE HYDROCHLORIDE. [Concomitant]
     Active Substance: OXYCODONE HYDROCHLORIDE
     Indication: PAIN
     Dosage: 5 MG, AS NEEDED (EVERY 3-4 HRS)
     Route: 048
     Dates: start: 20131111
  13. METHYLPREDNISOLONE SODIUM SUCCINATE. [Concomitant]
     Active Substance: METHYLPREDNISOLONE SODIUM SUCCINATE
     Dosage: UNK
  14. ZANAFLEX [Concomitant]
     Active Substance: TIZANIDINE HYDROCHLORIDE
     Indication: MUSCLE SPASMS
     Dosage: 4 MG, AS NEEDED (THREE TIMES A DAY)
     Route: 048
  15. ASPIRIN (E.C.) [Concomitant]
     Active Substance: ASPIRIN
     Dosage: UNK
  16. GLIMEPIRIDE. [Concomitant]
     Active Substance: GLIMEPIRIDE
     Dosage: UNK
  17. METFORMIN HCL [Concomitant]
     Active Substance: METFORMIN HYDROCHLORIDE
     Dosage: 850 MG, 2X/DAY
     Route: 048
  18. PROAIR HFA [Concomitant]
     Active Substance: ALBUTEROL SULFATE
     Indication: WHEEZING
     Dosage: 90 MCG HFA AEROSOL WITH ADAPTER (GM) TAKE 2 INHALATION(S) BY INHALATION AS NEEDED
  19. CIPROFLOXACIN HCL [Concomitant]
     Active Substance: CIPROFLOXACIN HYDROCHLORIDE
     Dosage: 250 MG, 2X/DAY
     Route: 048
     Dates: start: 20150608
  20. CALCIUM [Concomitant]
     Active Substance: CALCIUM
     Dosage: UNK
     Route: 048
     Dates: end: 2015
  21. HYDROCORTISONE SOD SUCCINATE [Concomitant]
     Dosage: UNK
  22. AMARYL [Concomitant]
     Active Substance: GLIMEPIRIDE
     Dosage: 8 MG, DAILY
     Route: 048
     Dates: start: 20160204
  23. SYNTHROID [Concomitant]
     Active Substance: LEVOTHYROXINE SODIUM
     Dosage: 75 UG, DAILY
     Route: 048
     Dates: start: 20160204
  24. PRILOSEC [Concomitant]
     Active Substance: OMEPRAZOLE MAGNESIUM
     Dosage: 20 MG, DAILY
     Route: 048
     Dates: start: 20160204
  25. CALCIUM 600+VIT D [Concomitant]
     Active Substance: CALCIUM\ERGOCALCIFEROL
     Dosage: 1200 MG, DAILY
     Route: 048
  26. MULTIVITAMINS /07504101/ [Concomitant]
     Active Substance: VITAMINS
  27. LYRICA [Suspect]
     Active Substance: PREGABALIN
     Indication: DIABETIC NEUROPATHY
     Dosage: 50 MG, 2X/DAY
     Route: 048
  28. ASPIRIN (E.C.) [Concomitant]
     Active Substance: ASPIRIN
     Dosage: 325 MG, DAILY
     Route: 048
  29. LOVASTATIN. [Concomitant]
     Active Substance: LOVASTATIN
     Dosage: 10 MG, DAILY
  30. LOVASTATIN. [Concomitant]
     Active Substance: LOVASTATIN
     Dosage: UNK
  31. MOBIC [Concomitant]
     Active Substance: MELOXICAM
     Dosage: 15 MG, DAILY
     Route: 048
     Dates: start: 20160204
  32. ZYRTEC [Concomitant]
     Active Substance: CETIRIZINE HYDROCHLORIDE
     Dosage: 10 MG DAILY AS NEEDED
     Route: 048
  33. VITAMIN D [Concomitant]
     Active Substance: CHOLECALCIFEROL
     Dosage: UNK
     Route: 048
  34. ZOVIRAX [Concomitant]
     Active Substance: ACYCLOVIR
     Dosage: 400 MG, 2X/DAY
     Route: 048
     Dates: start: 20160204
  35. SYNTHROID [Concomitant]
     Active Substance: LEVOTHYROXINE SODIUM
     Dosage: UNK
  36. LYRICA [Suspect]
     Active Substance: PREGABALIN
     Indication: THALAMIC INFARCTION
     Dosage: 100 MG, 3X/DAY
     Route: 048
  37. JANUVIA [Concomitant]
     Active Substance: SITAGLIPTIN PHOSPHATE
     Dosage: 100 MG, DAILY
     Route: 048
  38. METFORMIN HCL [Concomitant]
     Active Substance: METFORMIN HYDROCHLORIDE
     Dosage: UNK
  39. OCUVITE [Concomitant]
     Active Substance: VITAMINS
     Dosage: UNK
  40. FUROSEMIDE. [Concomitant]
     Active Substance: FUROSEMIDE
     Dosage: 20 MG, 1X/DAY
     Route: 048
  41. TRIAMCINOLONE ACETONIDE. [Concomitant]
     Active Substance: TRIAMCINOLONE ACETONIDE
     Dosage: UNK , 2X/DAY
     Route: 061
  42. LASIX [Concomitant]
     Active Substance: FUROSEMIDE
     Indication: SWELLING
     Dosage: 20 MG, AS NEEDED (DAILY)
     Dates: start: 20160129
  43. GLUCOPHAGE [Concomitant]
     Active Substance: METFORMIN HYDROCHLORIDE
     Dosage: 850 MG, 2X/DAY(WITH MEALS)
     Route: 048
     Dates: start: 20160204
  44. LEVOTHROID [Concomitant]
     Active Substance: LEVOTHYROXINE SODIUM
     Dosage: 75 UG, DAILY
     Route: 048
  45. LYRICA [Suspect]
     Active Substance: PREGABALIN
     Indication: HYPOAESTHESIA
     Dosage: 100 MG, 3X/DAY
     Route: 048
  46. LYRICA [Suspect]
     Active Substance: PREGABALIN
     Indication: DIABETIC NEUROPATHY
  47. LEVOXYL [Concomitant]
     Active Substance: LEVOTHYROXINE SODIUM
     Dosage: 75 UG, DAILY
     Route: 048
  48. DEXAMETHASONE. [Concomitant]
     Active Substance: DEXAMETHASONE
     Dosage: 4 MG, WEEKLY
     Route: 048
     Dates: start: 20130920
  49. PROCHLORPERAZINE MALEATE. [Concomitant]
     Active Substance: PROCHLORPERAZINE MALEATE
     Indication: NAUSEA
     Dosage: 10 MG, AS NEEDED (FOUR TIMES A DAY)
     Route: 048
     Dates: start: 20130920
  50. KENALOG [Concomitant]
     Active Substance: TRIAMCINOLONE ACETONIDE
     Dosage: 1 %, AS NEEDED (TWICE A DAY)
     Route: 061
     Dates: start: 20160204
  51. ATROVENT [Concomitant]
     Active Substance: IPRATROPIUM BROMIDE
     Indication: RHINITIS
     Dosage: 42 UG, AS NEEDED (TWO SPRAYS EACH NOSTRILS THREE TIMES A DAY)
     Route: 045
  52. LYRICA [Suspect]
     Active Substance: PREGABALIN
     Indication: NEUROPATHY PERIPHERAL
     Dosage: 100 MG, 3X/DAY
     Route: 048
     Dates: start: 20160204
  53. LEVOXYL [Concomitant]
     Active Substance: LEVOTHYROXINE SODIUM
     Dosage: UNK
  54. OMEPRAZOLE. [Concomitant]
     Active Substance: OMEPRAZOLE
     Dosage: UNK
     Route: 048
  55. TRAMADOL HCL [Concomitant]
     Active Substance: TRAMADOL HYDROCHLORIDE
     Dosage: UNK, AS NEEDED
     Route: 048
  56. VITAMIN D3 [Concomitant]
     Active Substance: CHOLECALCIFEROL
     Dosage: UNK
  57. ACYCLOVIR. [Concomitant]
     Active Substance: ACYCLOVIR
     Dosage: 400 MG, 2X/DAY
     Route: 048
     Dates: start: 20130920
  58. MEVACOR [Concomitant]
     Active Substance: LOVASTATIN
     Dosage: UNK
  59. LYRICA [Suspect]
     Active Substance: PREGABALIN
     Indication: BACK PAIN
  60. GLIMEPIRIDE. [Concomitant]
     Active Substance: GLIMEPIRIDE
     Dosage: 1 MG, 2X/DAY
     Route: 048
  61. MOBIC [Concomitant]
     Active Substance: MELOXICAM
     Dosage: UNK
  62. VITAMIN B12 [Concomitant]
     Active Substance: CYANOCOBALAMIN
     Dosage: 500 UG, UNK (AS DIRECTED)
     Route: 048
  63. VITAMIN B12 [Concomitant]
     Active Substance: CYANOCOBALAMIN
     Dosage: UNK
  64. VITAMIN D3 [Concomitant]
     Active Substance: CHOLECALCIFEROL
     Dosage: 500 IU, DAILY
  65. ZOLEDRONIC ACID [Concomitant]
     Active Substance: ZOLEDRONIC ACID
     Dosage: UNK UNK, Q28D
     Dates: start: 20130920
  66. AMARYL [Concomitant]
     Active Substance: GLIMEPIRIDE
     Dosage: UNK
  67. MEVACOR [Concomitant]
     Active Substance: LOVASTATIN
     Dosage: 10 MG, 1X/DAY(NIGHTLY)
     Route: 048
     Dates: start: 20160204
  68. CALCIUM 600+VIT D [Concomitant]
     Active Substance: CALCIUM\ERGOCALCIFEROL
     Dosage: UNK
     Dates: end: 2015
  69. LEVOTHROID [Concomitant]
     Active Substance: LEVOTHYROXINE SODIUM
     Dosage: UNK
  70. ZOFRAN [Concomitant]
     Active Substance: ONDANSETRON HYDROCHLORIDE
     Dosage: 4 MG, AS NEEDED (EVERY EIGHT HOURS)
     Route: 048

REACTIONS (13)
  - Chronic kidney disease [Not Recovered/Not Resolved]
  - Compression fracture [Not Recovered/Not Resolved]
  - Pain [Not Recovered/Not Resolved]
  - Osteoporosis [Not Recovered/Not Resolved]
  - Plasma cell myeloma [Not Recovered/Not Resolved]
  - Neoplasm malignant [Unknown]
  - Haemorrhage [Unknown]
  - Iron deficiency anaemia [Unknown]
  - Macular degeneration [Not Recovered/Not Resolved]
  - Disease progression [Not Recovered/Not Resolved]
  - Visual impairment [Unknown]
  - Anaemia [Unknown]
  - Dry mouth [Recovering/Resolving]

NARRATIVE: CASE EVENT DATE: 2011
